FAERS Safety Report 17591095 (Version 1)
Quarter: 2020Q1

REPORT INFORMATION
  Report Type: Spontaneous
  Country: US (occurrence: US)
  Receive Date: 20200327
  Receipt Date: 20200327
  Transmission Date: 20200409
  Serious: No
  Sender: FDA-Public Use
  Company Number: None

PATIENT
  Age: 70 Year
  Sex: Male
  Weight: 54 kg

DRUGS (2)
  1. ERLEADA [Suspect]
     Active Substance: APALUTAMIDE
     Indication: ACQUIRED GROWTH HORMONE RESISTANCE
     Route: 048
     Dates: start: 20200214
  2. ZOLADEX [Concomitant]
     Active Substance: GOSERELIN ACETATE

REACTIONS (1)
  - Fatigue [None]

NARRATIVE: CASE EVENT DATE: 20200327
